FAERS Safety Report 16797789 (Version 2)
Quarter: 2019Q4

REPORT INFORMATION
  Report Type: Spontaneous
  Country: DE (occurrence: DE)
  Receive Date: 20190912
  Receipt Date: 20191001
  Transmission Date: 20200122
  Serious: Yes (Hospitalization)
  Sender: FDA-Public Use
  Company Number: DE-TEVA-2019-DE-1105605

PATIENT
  Age: 53 Year
  Sex: Male

DRUGS (1)
  1. SILDENAFIL 50 MG [Suspect]
     Active Substance: SILDENAFIL
     Route: 048

REACTIONS (1)
  - Retinal artery occlusion [Recovering/Resolving]
